FAERS Safety Report 8613436-X (Version None)
Quarter: 2012Q3

REPORT INFORMATION
  Report Type: 
  Country: None (occurrence: None)
  Receive Date: 20120822
  Receipt Date: 20120807
  Transmission Date: 20120928
  Serious: Yes (Other)
  Sender: FDA-Public Use
  Company Number: JP-009507513-1208JPN000036

PATIENT

DRUGS (5)
  1. DECADRON PHOSPHATE [Suspect]
     Indication: MULTIPLE MYELOMA
     Dosage: 12 MG, QD
     Route: 048
     Dates: start: 20110101
  2. DECADRON PHOSPHATE [Suspect]
     Dosage: 20 MG, QD
     Dates: start: 20100801
  3. LENALIDOMIDE [Suspect]
     Dosage: 10 MG,
     Route: 048
  4. LENALIDOMIDE [Suspect]
     Indication: MULTIPLE MYELOMA
     Dosage: 5 MG,
     Route: 048
     Dates: start: 20100801
  5. LENALIDOMIDE [Suspect]
     Dosage: UNK
     Route: 048
     Dates: start: 20110101

REACTIONS (4)
  - TETANY [None]
  - BLOOD MAGNESIUM DECREASED [None]
  - BLOOD ALKALINE PHOSPHATASE INCREASED [None]
  - BLOOD CALCIUM DECREASED [None]
